FAERS Safety Report 15264136 (Version 1)
Quarter: 2018Q3

REPORT INFORMATION
  Report Type: Spontaneous
  Country: FR (occurrence: FR)
  Receive Date: 20180810
  Receipt Date: 20180810
  Transmission Date: 20181010
  Serious: Yes (Death, Hospitalization)
  Sender: FDA-Public Use
  Company Number: FR-TEVA-2018-FR-937415

PATIENT
  Age: 81 Year
  Sex: Female
  Weight: 64 kg

DRUGS (2)
  1. VESICARE [Interacting]
     Active Substance: SOLIFENACIN SUCCINATE
     Indication: HYPERTONIC BLADDER
     Dosage: 10 MILLIGRAM DAILY;
     Route: 065
     Dates: start: 20161220, end: 20170122
  2. FLUVOXAMINE [Suspect]
     Active Substance: FLUVOXAMINE
     Indication: PRODUCT USED FOR UNKNOWN INDICATION
     Dosage: UNKNOWN FREQ.
     Route: 065

REACTIONS (6)
  - Drug interaction [Fatal]
  - Slipping rib syndrome [Fatal]
  - Vertigo [Fatal]
  - Choking [Fatal]
  - Hallucination [Fatal]
  - Urinary tract infection [Fatal]

NARRATIVE: CASE EVENT DATE: 201701
